FAERS Safety Report 15381240 (Version 3)
Quarter: 2018Q3

REPORT INFORMATION
  Report Type: Spontaneous
  Country: AR (occurrence: AR)
  Receive Date: 20180913
  Receipt Date: 20180926
  Transmission Date: 20181010
  Serious: Yes (Other)
  Sender: FDA-Public Use
  Company Number: AR-PFIZER INC-2018367914

PATIENT
  Age: 78 Year
  Sex: Female

DRUGS (1)
  1. IBRANCE [Suspect]
     Active Substance: PALBOCICLIB
     Indication: BREAST CANCER METASTATIC
     Dosage: 125 MG, CYCLIC (DAILY, SCHEME 3X1)
     Dates: start: 20170418, end: 20180504

REACTIONS (11)
  - Azotaemia [Unknown]
  - Bone pain [Unknown]
  - Abdominal discomfort [Unknown]
  - Diabetes mellitus [Unknown]
  - Visual impairment [Unknown]
  - Blood cholesterol increased [Unknown]
  - Neoplasm progression [Unknown]
  - Pain [Unknown]
  - Osteoporosis [Unknown]
  - Loss of consciousness [Unknown]
  - Flatulence [Unknown]

NARRATIVE: CASE EVENT DATE: 2017
